FAERS Safety Report 24057070 (Version 1)
Quarter: 2024Q3

REPORT INFORMATION
  Report Type: Report from Study
  Country: GB (occurrence: GB)
  Receive Date: 20240706
  Receipt Date: 20240706
  Transmission Date: 20241016
  Serious: Yes (Hospitalization)
  Sender: IPSEN
  Company Number: GB-IPSEN Group, Research and Development-2023-20364

PATIENT
  Age: 78 Year
  Sex: Female

DRUGS (2)
  1. LANREOTIDE ACETATE [Suspect]
     Active Substance: LANREOTIDE ACETATE
     Indication: Neuroendocrine tumour
     Dosage: 120 MG, EVERY 4 WEEK
     Route: 065
  2. LANREOTIDE ACETATE [Suspect]
     Active Substance: LANREOTIDE ACETATE
     Dosage: LANREOTIDE-IPSEN  120 MG, EVERY 4 WEEK
     Route: 065

REACTIONS (14)
  - Vomiting [Unknown]
  - Abdominal pain [Unknown]
  - Infection [Unknown]
  - Nausea [Recovered/Resolved]
  - Diarrhoea [Recovered/Resolved]
  - Arthralgia [Unknown]
  - Diarrhoea [Recovered/Resolved]
  - Paraesthesia [Recovered/Resolved]
  - Grip strength decreased [Unknown]
  - Feeling hot [Recovered/Resolved]
  - Fatigue [Recovered/Resolved]
  - Spinal pain [Unknown]
  - Abdominal discomfort [Unknown]
  - Chest discomfort [Unknown]

NARRATIVE: CASE EVENT DATE: 20240519
